FAERS Safety Report 9912674 (Version 2)
Quarter: 2014Q1

REPORT INFORMATION
  Report Type: Spontaneous
  Country: IT (occurrence: IT)
  Receive Date: 20140220
  Receipt Date: 20140304
  Transmission Date: 20141002
  Serious: Yes (Hospitalization)
  Sender: FDA-Public Use
  Company Number: IT-SHIRE-ALL1-2014-00940

PATIENT
  Age: 51 Year
  Sex: Male

DRUGS (2)
  1. XAGRID [Suspect]
     Indication: ESSENTIAL THROMBOCYTHAEMIA
     Dosage: 2.5 MG, 1X/DAY:QD
     Route: 048
     Dates: start: 2007
  2. XAGRID [Suspect]
     Dosage: 1 MG, 1X/DAY:QD
     Route: 048
     Dates: start: 20070704, end: 2007

REACTIONS (1)
  - Gastric ulcer haemorrhage [Recovered/Resolved]
